FAERS Safety Report 18791887 (Version 2)
Quarter: 2021Q1

REPORT INFORMATION
  Report Type: Other
  Country: US (occurrence: US)
  Receive Date: 20210127
  Receipt Date: 20210301
  Transmission Date: 20210419
  Serious: Yes (Other)
  Sender: FDA-Public Use
  Company Number: US-ROCHE-2132621

PATIENT
  Sex: Male
  Weight: 90.8 kg

DRUGS (8)
  1. ALECENSA [Suspect]
     Active Substance: ALECTINIB HYDROCHLORIDE
     Indication: ANAPLASTIC LYMPHOMA KINASE GENE MUTATION
     Dosage: WITH MEALS, 6 CAPSULES
     Route: 048
     Dates: start: 20180321
  2. ALECENSA [Suspect]
     Active Substance: ALECTINIB HYDROCHLORIDE
     Indication: EPILEPSY
     Dosage: TAKES 1800 MG A DAY
     Route: 048
  3. ALECENSA [Suspect]
     Active Substance: ALECTINIB HYDROCHLORIDE
     Indication: SEIZURE
     Route: 048
     Dates: start: 201407
  4. VITAMIN D3 [Concomitant]
     Active Substance: CHOLECALCIFEROL
  5. ALECENSA [Suspect]
     Active Substance: ALECTINIB HYDROCHLORIDE
     Indication: LUNG NEOPLASM MALIGNANT
     Route: 048
  6. ALECENSA [Suspect]
     Active Substance: ALECTINIB HYDROCHLORIDE
     Dosage: TAKE 6 CAPSULES BY MOUTH TWICE A DAY WITH FOOD ON DAYS 1?28 OF RADIATION
     Route: 048
  7. CALCITRIOL. [Concomitant]
     Active Substance: CALCITRIOL
     Route: 048
  8. ALBUTEROL. [Concomitant]
     Active Substance: ALBUTEROL
     Indication: ASTHMA
     Dosage: SINCE AGE 10

REACTIONS (4)
  - Recurrent cancer [Not Recovered/Not Resolved]
  - Radiation associated pain [Not Recovered/Not Resolved]
  - Stroke-like migraine attacks after radiation therapy [Not Recovered/Not Resolved]
  - Memory impairment [Unknown]
